FAERS Safety Report 7905762-4 (Version None)
Quarter: 2011Q4

REPORT INFORMATION
  Report Type: 
  Country: None (occurrence: None)
  Receive Date: 20111108
  Receipt Date: 20111024
  Transmission Date: 20120403
  Serious: Yes (Death, Hospitalization, Other)
  Sender: FDA-Public Use
  Company Number: 2011MA015712

PATIENT
  Age: 51 Year
  Sex: Male

DRUGS (1)
  1. PAREGORIC LIQUID USP (ALPHARMA) [Suspect]
     Indication: COMPLETED SUICIDE
     Dosage: X1

REACTIONS (9)
  - HAEMORRHOIDS [None]
  - FATIGUE [None]
  - TACHYARRHYTHMIA [None]
  - RHEUMATIC FEVER [None]
  - MIGRAINE [None]
  - DEPRESSED MOOD [None]
  - ANGINA PECTORIS [None]
  - TONSILLITIS STREPTOCOCCAL [None]
  - RENAL FAILURE [None]
